FAERS Safety Report 10804149 (Version 1)
Quarter: 2015Q1

REPORT INFORMATION
  Report Type: Report from Study
  Country: US (occurrence: US)
  Receive Date: 20150217
  Receipt Date: 20150217
  Transmission Date: 20150721
  Serious: No
  Sender: FDA-Public Use
  Company Number: US-ABBVIE-14K-163-1269829-00

PATIENT
  Age: 51 Year
  Sex: Female

DRUGS (8)
  1. PREDNISONE. [Concomitant]
     Active Substance: PREDNISONE
     Indication: PRODUCT USED FOR UNKNOWN INDICATION
     Dates: end: 20140728
  2. HUMIRA [Suspect]
     Active Substance: ADALIMUMAB
  3. PROTONIX [Concomitant]
     Active Substance: PANTOPRAZOLE SODIUM
     Indication: PRODUCT USED FOR UNKNOWN INDICATION
  4. HUMIRA [Suspect]
     Active Substance: ADALIMUMAB
     Indication: CROHN^S DISEASE
     Dosage: LOADING DOSE ONLY
     Dates: start: 20140728, end: 20140728
  5. PREDNISONE. [Concomitant]
     Active Substance: PREDNISONE
     Dates: start: 2014
  6. AVAPRO [Concomitant]
     Active Substance: IRBESARTAN
     Indication: PRODUCT USED FOR UNKNOWN INDICATION
  7. ZOFRAN [Concomitant]
     Active Substance: ONDANSETRON HYDROCHLORIDE
     Indication: PRODUCT USED FOR UNKNOWN INDICATION
  8. PHENERGAN [Concomitant]
     Active Substance: PROMETHAZINE HYDROCHLORIDE
     Indication: PRODUCT USED FOR UNKNOWN INDICATION

REACTIONS (10)
  - Feeling jittery [Unknown]
  - Feeling abnormal [Recovering/Resolving]
  - Injection site pain [Recovered/Resolved]
  - Blood glucose decreased [Unknown]
  - Blood glucose increased [Unknown]
  - Hypoaesthesia [Recovered/Resolved]
  - Joint injury [Unknown]
  - Muscle spasms [Recovered/Resolved]
  - Fall [Unknown]
  - Nervous system disorder [Unknown]

NARRATIVE: CASE EVENT DATE: 20140728
